APPROVED DRUG PRODUCT: MAXALT
Active Ingredient: RIZATRIPTAN BENZOATE
Strength: EQ 5MG BASE **Federal Register determination that product was not discontinued or withdrawn for safety or effectiveness reasons**
Dosage Form/Route: TABLET;ORAL
Application: N020864 | Product #001
Applicant: ORGANON LLC
Approved: Jun 29, 1998 | RLD: Yes | RS: No | Type: DISCN